FAERS Safety Report 24707491 (Version 3)
Quarter: 2024Q4

REPORT INFORMATION
  Report Type: Spontaneous
  Country: JP (occurrence: JP)
  Receive Date: 20241206
  Receipt Date: 20241226
  Transmission Date: 20250115
  Serious: Yes (Hospitalization, Other)
  Sender: ABBVIE
  Company Number: JP-GSKJP-JP2024JPN146713

PATIENT
  Age: 52 Year
  Sex: Female
  Weight: 66 kg

DRUGS (1)
  1. BOTOX [Suspect]
     Active Substance: ONABOTULINUMTOXINA
     Indication: Torticollis
     Dosage: TIME INTERVAL: AS NECESSARY: DOSE: 50 IU, 1 VIAL X 1 DOSE
     Route: 030
     Dates: start: 20241113, end: 20241113

REACTIONS (5)
  - Anaphylactic shock [Recovered/Resolved]
  - Nausea [Recovered/Resolved]
  - Pallor [Recovered/Resolved]
  - Muscle spasms [Recovered/Resolved]
  - Dyspnoea [Recovered/Resolved]

NARRATIVE: CASE EVENT DATE: 20241113
